FAERS Safety Report 8197579-3 (Version None)
Quarter: 2012Q1

REPORT INFORMATION
  Report Type: 
  Country: None (occurrence: None)
  Receive Date: 20120309
  Receipt Date: 20120229
  Transmission Date: 20120608
  Serious: Yes (Other)
  Sender: FDA-Public Use
  Company Number: DE-B.I. PHARMACEUTICALS,INC./RIDGEFIELD-2012-DE-00603DE

PATIENT

DRUGS (1)
  1. PRADAXA [Suspect]
     Indication: PROSTHESIS USER
     Dosage: 110MG +75 MG
     Dates: start: 20110301

REACTIONS (1)
  - WOUND SECRETION [None]
